FAERS Safety Report 4962754-5 (Version None)
Quarter: 2006Q2

REPORT INFORMATION
  Report Type: 
  Country: None (occurrence: None)
  Receive Date: 20060404
  Receipt Date: 20051012
  Transmission Date: 20061013
  Serious: Yes (Hospitalization, Disabling)
  Sender: FDA-Public Use
  Company Number: US-MERCK-0510USA06884

PATIENT
  Age: 52 Year
  Sex: Male
  Weight: 99 kg

DRUGS (18)
  1. VIOXX [Suspect]
     Indication: PSORIATIC ARTHROPATHY
     Route: 048
     Dates: start: 20001019, end: 20030902
  2. VIOXX [Suspect]
     Indication: OSTEOARTHRITIS
     Route: 048
     Dates: start: 20001019, end: 20030902
  3. METHOTREXATE [Concomitant]
     Route: 065
  4. SULFASALAZINE [Concomitant]
     Route: 065
  5. CLOBETASOL PROPIONATE [Concomitant]
     Route: 065
  6. DESONIDE [Concomitant]
     Route: 065
  7. CEPHALEXIN [Concomitant]
     Route: 065
  8. DINOVEX [Concomitant]
     Route: 065
  9. LAC-HYDRIN [Concomitant]
     Route: 065
  10. HYDROCORTISONE ACETATE [Concomitant]
     Route: 065
  11. FOLIC ACID [Concomitant]
     Route: 065
  12. VICODIN [Concomitant]
     Route: 065
  13. HYDROCHLOROTHIAZIDE [Concomitant]
     Route: 065
  14. POTASSIUM (UNSPECIFIED) [Concomitant]
     Route: 065
  15. ENBREL [Concomitant]
     Route: 065
  16. FLONASE [Concomitant]
     Route: 065
  17. ALLEGRA [Concomitant]
     Route: 065
  18. TRIAMCINOLONE [Concomitant]
     Route: 065

REACTIONS (3)
  - CARDIAC DISORDER [None]
  - MYOCARDIAL INFARCTION [None]
  - NASAL SEPTUM DEVIATION [None]
